FAERS Safety Report 11379473 (Version 1)
Quarter: 2015Q3

REPORT INFORMATION
  Report Type: Report from Study
  Country: US (occurrence: US)
  Receive Date: 20150814
  Receipt Date: 20150814
  Transmission Date: 20151125
  Serious: No
  Sender: FDA-Public Use
  Company Number: US-AMGEN-USASL2015080188

PATIENT
  Sex: Female

DRUGS (7)
  1. ENBREL [Suspect]
     Active Substance: ETANERCEPT
     Indication: RHEUMATOID ARTHRITIS
     Dosage: 50 MG, UNK
     Route: 065
     Dates: start: 20150621, end: 20150706
  2. PIROXICAM. [Concomitant]
     Active Substance: PIROXICAM
     Dosage: UNK
  3. NEXIUM [Concomitant]
     Active Substance: ESOMEPRAZOLE MAGNESIUM
     Dosage: UNK
  4. CAFFEINE. [Concomitant]
     Active Substance: CAFFEINE
     Dosage: UNK
  5. ASPIRIN                            /00002701/ [Concomitant]
     Active Substance: ASPIRIN
     Dosage: UNK
  6. TOPIRAMATE. [Concomitant]
     Active Substance: TOPIRAMATE
     Dosage: UNK
  7. BUTALBITAL [Concomitant]
     Active Substance: BUTALBITAL
     Dosage: UNK

REACTIONS (7)
  - Frustration [Unknown]
  - Headache [Not Recovered/Not Resolved]
  - Photophobia [Unknown]
  - Hyperacusis [Unknown]
  - Osteoarthritis [Unknown]
  - Pain [Unknown]
  - Feeling abnormal [Unknown]

NARRATIVE: CASE EVENT DATE: 20150626
